FAERS Safety Report 25127738 (Version 1)
Quarter: 2025Q1

REPORT INFORMATION
  Report Type: Spontaneous
  Country: US (occurrence: US)
  Receive Date: 20250327
  Receipt Date: 20250327
  Transmission Date: 20250409
  Serious: No
  Sender: TEVA
  Company Number: US-TEVA-VS-3309564

PATIENT
  Age: 68 Year
  Sex: Female

DRUGS (1)
  1. AJOVY [Suspect]
     Active Substance: FREMANEZUMAB-VFRM
     Indication: Migraine
     Dosage: 225 MG UNDER THE SKIN EVERY 30 DAYS
     Route: 058

REACTIONS (3)
  - Rash [Unknown]
  - Inappropriate schedule of product administration [Unknown]
  - Product use issue [Unknown]
